FAERS Safety Report 18246801 (Version 2)
Quarter: 2020Q3

REPORT INFORMATION
  Report Type: Spontaneous
  Country: AU (occurrence: AU)
  Receive Date: 20200909
  Receipt Date: 20200918
  Transmission Date: 20201103
  Serious: Yes (Other)
  Sender: FDA-Public Use
  Company Number: AU-BAUSCH-BL-2020-025415

PATIENT
  Age: 51 Year
  Sex: Male

DRUGS (4)
  1. MYCOPHENOLATE MOFETIL. [Suspect]
     Active Substance: MYCOPHENOLATE MOFETIL
     Indication: PRODUCT USED FOR UNKNOWN INDICATION
     Route: 065
  2. PREDNISOLONE. [Suspect]
     Active Substance: PREDNISOLONE
     Indication: PRODUCT USED FOR UNKNOWN INDICATION
     Dosage: INTERVAL: 1 DAY
     Route: 042
  3. AZATHIOPRINE. [Suspect]
     Active Substance: AZATHIOPRINE
     Indication: PRODUCT USED FOR UNKNOWN INDICATION
     Route: 065
  4. CICLOSPORIN [Suspect]
     Active Substance: CYCLOSPORINE
     Indication: PRODUCT USED FOR UNKNOWN INDICATION
     Route: 065

REACTIONS (14)
  - Eczema [Unknown]
  - Eye disorder [Unknown]
  - Dermatitis atopic [Unknown]
  - Hepatitis [Unknown]
  - Cataract [Unknown]
  - Corneal scar [Unknown]
  - Keratitis [Unknown]
  - Quality of life decreased [Unknown]
  - Vitiligo [Unknown]
  - Back pain [Unknown]
  - Gastrointestinal disorder [Unknown]
  - Infection [Unknown]
  - Drug ineffective [Unknown]
  - Alopecia [Unknown]
